FAERS Safety Report 7090398-0 (Version None)
Quarter: 2010Q4

REPORT INFORMATION
  Report Type: 
  Country: None (occurrence: None)
  Receive Date: 20101109
  Receipt Date: 20101028
  Transmission Date: 20110411
  Serious: Yes (Other)
  Sender: FDA-Public Use
  Company Number: US-JNJFOC-20061004245

PATIENT
  Sex: Female

DRUGS (2)
  1. RISPERDAL [Suspect]
     Indication: SLEEP DISORDER THERAPY
     Route: 065
  2. RISPERDAL [Suspect]
     Indication: AFFECTIVE DISORDER
     Route: 065

REACTIONS (1)
  - INSULIN-REQUIRING TYPE 2 DIABETES MELLITUS [None]
